FAERS Safety Report 15802109 (Version 1)
Quarter: 2019Q1

REPORT INFORMATION
  Report Type: Other
  Country: ES (occurrence: ES)
  Receive Date: 20190109
  Receipt Date: 20190109
  Transmission Date: 20190417
  Serious: Yes (Other)
  Sender: FDA-Public Use
  Company Number: ES-APOTEX-2019AP005051

PATIENT
  Age: 18 Year
  Sex: Female

DRUGS (2)
  1. PARACETAMOL [Suspect]
     Active Substance: ACETAMINOPHEN
     Indication: PRODUCT USED FOR UNKNOWN INDICATION
     Dosage: 1 G, UNK (DOSAGE FORM: UNSPECIFIED)
     Route: 048
     Dates: start: 2009
  2. IBUPROFEN. [Suspect]
     Active Substance: IBUPROFEN
     Indication: PRODUCT USED FOR UNKNOWN INDICATION
     Dosage: 600 MG, QD (DOSAGE FORM: UNSPECIFIED)
     Route: 048
     Dates: start: 2009

REACTIONS (2)
  - Respiratory disorder [Recovered/Resolved]
  - Bronchospasm [Unknown]

NARRATIVE: CASE EVENT DATE: 2009
